FAERS Safety Report 17900244 (Version 4)
Quarter: 2021Q1

REPORT INFORMATION
  Report Type: Spontaneous
  Country: US (occurrence: US)
  Receive Date: 20200616
  Receipt Date: 20210325
  Transmission Date: 20210419
  Serious: Yes (Other)
  Sender: FDA-Public Use
  Company Number: US-PFIZER INC-2020231981

PATIENT
  Age: 33 Year
  Sex: Female
  Weight: 141.07 kg

DRUGS (2)
  1. LYRICA [Suspect]
     Active Substance: PREGABALIN
     Dosage: 75 MG IN THE MORNING, 75 MG OR 150 MG DURING THE DAY AND 150 MG AT NIGHT (THREE TIMES A DAY)
     Route: 048
  2. LYRICA [Suspect]
     Active Substance: PREGABALIN
     Indication: FIBROMYALGIA
     Dosage: 150 MG, THREE TIMES A DAY
     Route: 048

REACTIONS (3)
  - Migraine [Unknown]
  - Intentional product use issue [Unknown]
  - Drug dependence [Unknown]
